FAERS Safety Report 7948426-3 (Version None)
Quarter: 2011Q4

REPORT INFORMATION
  Report Type: 
  Country: None (occurrence: None)
  Receive Date: 20111125
  Receipt Date: 20111111
  Transmission Date: 20120403
  Serious: Yes (Hospitalization)
  Sender: FDA-Public Use
  Company Number: 02100-JPN-07-0720

PATIENT
  Age: 66 Year
  Sex: Male

DRUGS (8)
  1. CLOPIDOGREL [Suspect]
     Indication: PRODUCT USED FOR UNKNOWN INDICATION
     Dosage: 75 MG, QD; ORAL
     Route: 048
     Dates: start: 20051227
  2. SIMVASTATIN [Concomitant]
  3. ASPIRIN [Suspect]
     Indication: PRODUCT USED FOR UNKNOWN INDICATION
     Dosage: 200 MG, QD ORAL
     Route: 048
     Dates: start: 20051227
  4. IRBESARTAN [Concomitant]
  5. PLETAL [Suspect]
     Indication: PRODUCT USED FOR UNKNOWN INDICATION
     Dosage: 100 MG, BID, ORAL
     Route: 048
     Dates: start: 20070706
  6. EZETIMIBE [Concomitant]
  7. ATENOLOL [Concomitant]
  8. NICORANDIL (NICORANDIL) [Concomitant]

REACTIONS (3)
  - ANGINA UNSTABLE [None]
  - STRESS [None]
  - DYSPNOEA [None]
